FAERS Safety Report 6124497-4 (Version None)
Quarter: 2009Q1

REPORT INFORMATION
  Report Type: 
  Country: None (occurrence: None)
  Receive Date: 20090319
  Receipt Date: 20090312
  Transmission Date: 20090719
  Serious: Yes (Other)
  Sender: FDA-Public Use
  Company Number: US-AMGEN-QUU334891

PATIENT
  Sex: Female
  Weight: 68.1 kg

DRUGS (3)
  1. ENBREL [Suspect]
     Indication: PSORIASIS
     Route: 058
     Dates: start: 20080707
  2. AVELOX [Suspect]
  3. ALLEGRA [Concomitant]

REACTIONS (4)
  - DYSPNOEA [None]
  - SINUSITIS [None]
  - SWOLLEN TONGUE [None]
  - THROAT IRRITATION [None]
